FAERS Safety Report 12215645 (Version 1)
Quarter: 2016Q1

REPORT INFORMATION
  Report Type: Spontaneous
  Country: IR (occurrence: IR)
  Receive Date: 20160328
  Receipt Date: 20160328
  Transmission Date: 20160526
  Serious: Yes (Hospitalization)
  Sender: FDA-Public Use
  Company Number: PHHY2016IR029233

PATIENT
  Age: 26 Year
  Sex: Female
  Weight: 79 kg

DRUGS (10)
  1. METHOTREXATE [Suspect]
     Active Substance: METHOTREXATE
     Indication: PROPHYLAXIS AGAINST GRAFT VERSUS HOST DISEASE
  2. CICLOSPORIN [Suspect]
     Active Substance: CYCLOSPORINE
     Indication: STEM CELL TRANSPLANT
     Dosage: 120 MG, Q12H (1.5 MG/KG) FROM DAY -2
     Route: 042
  3. CIPROFLOXACIN. [Suspect]
     Active Substance: CIPROFLOXACIN
     Indication: ANTIBIOTIC PROPHYLAXIS
     Dosage: UNK, NO TREATMENT
     Route: 065
  4. CICLOSPORIN [Suspect]
     Active Substance: CYCLOSPORINE
     Indication: PROPHYLAXIS AGAINST GRAFT VERSUS HOST DISEASE
     Dosage: 500 MG, UNK
     Route: 048
  5. CIPROFLOXACIN. [Suspect]
     Active Substance: CIPROFLOXACIN
     Dosage: 500 MG, BID
     Route: 048
  6. ACYCLOVIR. [Concomitant]
     Active Substance: ACYCLOVIR
     Indication: ANTIBIOTIC PROPHYLAXIS
     Dosage: STARTED ON DAY-8
     Route: 048
  7. METHOTREXATE [Suspect]
     Active Substance: METHOTREXATE
     Indication: STEM CELL TRANSPLANT
     Dosage: 10 MG, (ON DAYS +1, +3, +6 AND +11)
     Route: 065
  8. FLUCONAZOLE. [Concomitant]
     Active Substance: FLUCONAZOLE
     Indication: ANTIBIOTIC PROPHYLAXIS
     Dosage: STARTED ON DAY -8
     Route: 048
  9. CICLOSPORIN [Suspect]
     Active Substance: CYCLOSPORINE
     Dosage: 250 MG, UNK
     Route: 048
  10. SULFAMETHOXAZOLE AND TRIMETHOPRIM [Concomitant]
     Active Substance: SULFAMETHOXAZOLE\TRIMETHOPRIM
     Indication: ANTIBIOTIC PROPHYLAXIS
     Dosage: STARTED ON DAY-8
     Route: 048

REACTIONS (13)
  - Toxicity to various agents [Recovered/Resolved]
  - Immunosuppressant drug level increased [Unknown]
  - Intercepted product selection error [Recovered/Resolved]
  - Nausea [Unknown]
  - Tremor [Unknown]
  - Wrong drug administered [Recovered/Resolved]
  - Acute graft versus host disease [Recovered/Resolved]
  - Chest discomfort [Recovered/Resolved]
  - Accidental overdose [Recovered/Resolved]
  - Vertigo positional [Unknown]
  - Dizziness [Unknown]
  - Flushing [Recovered/Resolved]
  - Vomiting [Unknown]
